FAERS Safety Report 7339576-3 (Version None)
Quarter: 2011Q1

REPORT INFORMATION
  Report Type: 
  Country: None (occurrence: None)
  Receive Date: 20110308
  Receipt Date: 20110223
  Transmission Date: 20110831
  Serious: Yes (Hospitalization, Other)
  Sender: FDA-Public Use
  Company Number: US-NAPPMUNDI-DEU-2011-0007053

PATIENT
  Age: 70 Year
  Sex: Male
  Weight: 44 kg

DRUGS (5)
  1. HYDROMORPHONE HCL [Suspect]
     Indication: PROCEDURAL PAIN
     Dosage: 1 MG, SEE TEXT
     Route: 042
  2. ERYTHROMYCIN [Concomitant]
     Indication: ANTIBIOTIC THERAPY
     Dosage: 100 MG, Q48H
  3. PROMETHAZINE [Concomitant]
     Indication: NAUSEA
  4. ERTAPENEM [Suspect]
     Indication: ANTIBIOTIC THERAPY
     Dosage: 1 G, DAILY
  5. PROMETHAZINE [Concomitant]
     Indication: VOMITING

REACTIONS (1)
  - DELIRIUM [None]
